FAERS Safety Report 7208502-X (Version None)
Quarter: 2010Q4

REPORT INFORMATION
  Report Type: 
  Country: None (occurrence: None)
  Receive Date: 20101222
  Receipt Date: 20101210
  Transmission Date: 20110411
  Serious: Yes (Hospitalization, Other)
  Sender: FDA-Public Use
  Company Number: 2010SP003476

PATIENT
  Age: 67 Year
  Sex: Male

DRUGS (12)
  1. ALVESCO [Suspect]
     Indication: EXPOSURE TO TOXIC AGENT
     Dosage: 160 UG;BID;INHALATION
     Route: 055
     Dates: start: 20100101
  2. ALVESCO [Suspect]
     Indication: RESPIRATORY TRACT IRRITATION
     Dosage: 160 UG;BID;INHALATION
     Route: 055
     Dates: start: 20100101
  3. QVAR 40 [Suspect]
     Dosage: 80 MG;BID;INHALATION
     Route: 055
     Dates: start: 20100101
  4. PROVENTIL /00139501/ [Concomitant]
  5. COMBIVENT [Concomitant]
  6. ATROVENT [Concomitant]
  7. ZYFLO [Concomitant]
  8. CLONAZEPAM [Concomitant]
  9. AMLODIPINE [Concomitant]
  10. QUININE /00032102/ [Concomitant]
  11. OXYGEN [Concomitant]
  12. PREV MEDS [Concomitant]

REACTIONS (4)
  - BRONCHOSPASM [None]
  - CHEST DISCOMFORT [None]
  - HALO VISION [None]
  - MIGRAINE [None]
